FAERS Safety Report 6360283-8 (Version None)
Quarter: 2009Q3

REPORT INFORMATION
  Report Type: 
  Country: None (occurrence: None)
  Receive Date: 20090817
  Receipt Date: 20090120
  Transmission Date: 20100115
  Serious: Yes (Hospitalization)
  Sender: FDA-Public Use
  Company Number: 20096143

PATIENT
  Age: 55 Year
  Sex: Female

DRUGS (1)
  1. LIORESAL [Suspect]
     Indication: MUSCLE SPASTICITY
     Dosage: 750 MCG, DAILY, INTRATHECAL
     Route: 037

REACTIONS (4)
  - AGITATION [None]
  - HYPERTONIA [None]
  - PAIN [None]
  - PYREXIA [None]
